FAERS Safety Report 10524841 (Version 2)
Quarter: 2014Q4

REPORT INFORMATION
  Report Type: Spontaneous
  Country: JP (occurrence: JP)
  Receive Date: 20141017
  Receipt Date: 20141017
  Transmission Date: 20150528
  Serious: Yes (Life-Threatening, Hospitalization)
  Sender: FDA-Public Use
  Company Number: JP-ROXANE LABORATORIES, INC.-2011-DE-06138GD

PATIENT
  Age: 66 Year
  Sex: Male
  Weight: 82.3 kg

DRUGS (11)
  1. MICARDIS [Suspect]
     Active Substance: TELMISARTAN
     Indication: HYPERTENSION
     Dosage: 40 MG
     Route: 048
     Dates: start: 20110214, end: 20110321
  2. SIGMART [Concomitant]
     Active Substance: NICORANDIL
     Indication: HYPERTENSION
     Dosage: 15 MG
     Route: 048
     Dates: start: 20100114
  3. ARTIST [Concomitant]
     Active Substance: CARVEDILOL
     Indication: HYPERTENSION
     Dosage: 20 MG
     Route: 048
     Dates: start: 1985
  4. LITHIUM CARBONATE. [Suspect]
     Active Substance: LITHIUM CARBONATE
     Indication: BIPOLAR I DISORDER
     Dosage: 500 MG
     Route: 048
     Dates: start: 1997, end: 20110330
  5. ALOSITOL [Concomitant]
     Active Substance: ALLOPURINOL
     Indication: HYPERURICAEMIA
     Dosage: 100 MG
     Route: 048
     Dates: start: 20100323
  6. BAYASPIRIN [Concomitant]
     Active Substance: ASPIRIN
     Indication: THROMBOSIS
     Dosage: 100 MG
     Route: 048
     Dates: start: 20100114
  7. SILECE [Concomitant]
     Active Substance: FLUNITRAZEPAM
     Indication: INSOMNIA
     Dosage: 2 MG
     Route: 048
     Dates: start: 1997
  8. TEGRETOL [Concomitant]
     Active Substance: CARBAMAZEPINE
     Indication: BIPOLAR I DISORDER
     Dosage: 600 MG
     Route: 048
     Dates: start: 200808, end: 20091207
  9. SELARA [Suspect]
     Active Substance: EPLERENONE
     Indication: HYPERTENSION
     Dosage: 50 MG
     Route: 048
     Dates: start: 20100217, end: 20110322
  10. TAKEPRON [Concomitant]
     Active Substance: LANSOPRAZOLE
     Indication: GASTRIC ULCER
     Dosage: 15 MG
     Route: 048
     Dates: start: 20100114
  11. BENZALIN [Concomitant]
     Active Substance: NITRAZEPAM
     Indication: INSOMNIA
     Dosage: 5 MG
     Route: 048
     Dates: start: 20100917, end: 20110705

REACTIONS (2)
  - Toxicity to various agents [Recovered/Resolved]
  - Renal impairment [Recovered/Resolved]

NARRATIVE: CASE EVENT DATE: 20110322
